FAERS Safety Report 15752325 (Version 1)
Quarter: 2018Q4

REPORT INFORMATION
  Report Type: Spontaneous
  Country: US (occurrence: US)
  Receive Date: 20181221
  Receipt Date: 20181221
  Transmission Date: 20190205
  Serious: Yes (Other)
  Sender: FDA-Public Use
  Company Number: US-TEVA-2018-US-988853

PATIENT
  Age: 66 Year
  Sex: Male

DRUGS (1)
  1. DIAZEPAM TABLET [Suspect]
     Active Substance: DIAZEPAM
     Indication: ANXIETY
     Route: 065
     Dates: start: 2008

REACTIONS (4)
  - Back disorder [Unknown]
  - Amnesia [Unknown]
  - Drug dependence [Unknown]
  - Withdrawal syndrome [Unknown]
